FAERS Safety Report 15783037 (Version 1)
Quarter: 2019Q1

REPORT INFORMATION
  Report Type: Report from Study
  Country: DE (occurrence: DE)
  Receive Date: 20190102
  Receipt Date: 20190102
  Transmission Date: 20190417
  Serious: Yes (Other)
  Sender: FDA-Public Use
  Company Number: DE-PFIZER INC-2018380139

PATIENT
  Age: 57 Year
  Sex: Female
  Weight: 84 kg

DRUGS (8)
  1. CALCIUM FOLINATE [Suspect]
     Active Substance: LEUCOVORIN CALCIUM
     Dosage: 378 MG, UNK
     Route: 065
     Dates: start: 20180424
  2. IRINOTECAN HCL [Suspect]
     Active Substance: IRINOTECAN HYDROCHLORIDE
     Indication: COLORECTAL CANCER METASTATIC
     Dosage: 340 MG, UNK
     Route: 065
     Dates: start: 20180116
  3. FLUOROURACIL. [Suspect]
     Active Substance: FLUOROURACIL
     Indication: COLORECTAL CANCER METASTATIC
     Dosage: 756 MG, UNK
     Route: 040
     Dates: start: 20180116
  4. CALCIUM FOLINATE [Suspect]
     Active Substance: LEUCOVORIN CALCIUM
     Indication: COLORECTAL CANCER METASTATIC
     Dosage: 378 MG, UNK
     Route: 065
     Dates: start: 20180116
  5. CALCIUM FOLINATE [Suspect]
     Active Substance: LEUCOVORIN CALCIUM
     Dosage: 340 MG, UNK
     Route: 065
     Dates: start: 20180410
  6. PANITUMUMAB [Suspect]
     Active Substance: PANITUMUMAB
     Dosage: 456 MG, UNK
     Route: 042
     Dates: start: 20180313
  7. FLUOROURACIL. [Suspect]
     Active Substance: FLUOROURACIL
     Dosage: 4536 MG, UNK
     Route: 042
     Dates: start: 20180116
  8. PANITUMUMAB [Suspect]
     Active Substance: PANITUMUMAB
     Indication: COLORECTAL CANCER METASTATIC
     Dosage: 462 MG, UNK
     Route: 042
     Dates: start: 20180116, end: 20180213

REACTIONS (6)
  - Erythema [Recovered/Resolved]
  - Swelling [Recovered/Resolved]
  - Acute polyneuropathy [Recovered/Resolved]
  - Pruritus [Recovered/Resolved]
  - Dry skin [Recovered/Resolved]
  - Rash pustular [Recovered/Resolved]

NARRATIVE: CASE EVENT DATE: 20180227
